FAERS Safety Report 9832974 (Version 2)
Quarter: 2014Q1

REPORT INFORMATION
  Report Type: Spontaneous
  Country: US (occurrence: US)
  Receive Date: 20140121
  Receipt Date: 20140305
  Transmission Date: 20141002
  Serious: Yes (Hospitalization)
  Sender: FDA-Public Use
  Company Number: US-B.I. PHARMACEUTICALS,INC./RIDGEFIELD-2014-BI-02010BP

PATIENT
  Age: 68 Year
  Sex: Male

DRUGS (1)
  1. PRADAXA [Suspect]
     Indication: ATRIAL FIBRILLATION
     Dosage: 300 MG
     Route: 048
     Dates: start: 201312, end: 20140109

REACTIONS (8)
  - Confusional state [Recovered/Resolved]
  - Logorrhoea [Recovered/Resolved]
  - Chest pain [Recovered/Resolved]
  - Agitation [Recovered/Resolved]
  - Insomnia [Recovered/Resolved]
  - Aphagia [Recovered/Resolved]
  - Weight decreased [Recovered/Resolved]
  - Quality of life decreased [Recovered/Resolved]
